FAERS Safety Report 13772194 (Version 3)
Quarter: 2018Q4

REPORT INFORMATION
  Report Type: Spontaneous
  Country: AT (occurrence: AT)
  Receive Date: 20170720
  Receipt Date: 20181009
  Transmission Date: 20190204
  Serious: Yes (Other)
  Sender: FDA-Public Use
  Company Number: AT-TEVA-787218ISR

PATIENT
  Age: 76 Year
  Sex: Female

DRUGS (51)
  1. ZANDIP [Concomitant]
     Dosage: 10 MG, DAILY
     Route: 065
     Dates: start: 2016, end: 20170104
  2. ABILIFY [Concomitant]
     Active Substance: ARIPIPRAZOLE
     Dosage: 2.5 MG, UNKNOWN
     Route: 065
     Dates: start: 20170320
  3. UNASYN [Suspect]
     Active Substance: AMPICILLIN SODIUM\SULBACTAM SODIUM
     Dosage: 3 G, DAILY
     Route: 042
     Dates: start: 20170203, end: 20170203
  4. CYMBALTA [Suspect]
     Active Substance: DULOXETINE HYDROCHLORIDE
     Dosage: 90 MG, DAILY
     Route: 065
     Dates: start: 20170117, end: 20170215
  5. TRITTICO [Suspect]
     Active Substance: TRAZODONE HYDROCHLORIDE
     Dosage: 100 MG, DAILY
     Route: 065
     Dates: start: 20170406
  6. PRAXITEN [Suspect]
     Active Substance: OXAZEPAM
     Dosage: 52.5 MG, DAILY
     Route: 065
     Dates: start: 20170113, end: 20170312
  7. MOLAXOLE [Concomitant]
     Active Substance: POLYETHYLENE GLYCOL 3350\POTASSIUM CHLORIDE\SODIUM BICARBONATE\SODIUM CHLORIDE
     Dosage: 4 DF, DAILY
     Route: 065
     Dates: start: 20170105
  8. UNASYN [Suspect]
     Active Substance: AMPICILLIN SODIUM\SULBACTAM SODIUM
     Dosage: 9 G, DAILY
     Route: 042
     Dates: start: 20170109, end: 20170110
  9. RIVOTRIL [Concomitant]
     Active Substance: CLONAZEPAM
     Dosage: 0.75, UNKNOWN
     Route: 065
  10. OCULOTECT [Concomitant]
     Dosage: UNK, DAILY
     Route: 065
     Dates: start: 20170105
  11. BRINTELLIX [Concomitant]
     Active Substance: VORTIOXETINE HYDROBROMIDE
     Dosage: 10 MG, DAILY
     Route: 065
     Dates: start: 201609, end: 20161228
  12. MACUSAN PLUS [Concomitant]
     Dosage: 1 DF, DAILY
     Route: 065
     Dates: start: 2016
  13. UNASYN [Suspect]
     Active Substance: AMPICILLIN SODIUM\SULBACTAM SODIUM
     Dosage: 6 G, DAILY
     Route: 042
     Dates: start: 20170119, end: 20170119
  14. PRAXITEN [Suspect]
     Active Substance: OXAZEPAM
     Dosage: 70 MG, DAILY
     Route: 065
     Dates: start: 20170112, end: 20170112
  15. PRAXITEN [Suspect]
     Active Substance: OXAZEPAM
     Dosage: 15 MG, DAILY
     Route: 065
     Dates: start: 20170327
  16. CONCOR [Concomitant]
     Active Substance: BISOPROLOL FUMARATE
     Dosage: 5 MG, DAILY
     Route: 065
     Dates: start: 20170119
  17. TEMESTA (LORAZEPAM) [Concomitant]
     Active Substance: LORAZEPAM
     Dosage: 2 MG, DAILY
     Route: 065
     Dates: start: 20161227, end: 20161227
  18. ENALAPRIL [Concomitant]
     Active Substance: ENALAPRIL
     Dosage: 20 MG, DAILY
     Route: 065
     Dates: start: 2016, end: 20170117
  19. LAMOTRIGINE. [Suspect]
     Active Substance: LAMOTRIGINE
     Indication: PRODUCT USED FOR UNKNOWN INDICATION
     Dosage: 50 MG, DAILY
     Route: 065
     Dates: start: 2016, end: 20161215
  20. UNASYN [Suspect]
     Active Substance: AMPICILLIN SODIUM\SULBACTAM SODIUM
     Indication: ANTIBIOTIC PROPHYLAXIS
     Dosage: 3 G, DAILY
     Route: 042
     Dates: start: 20170108, end: 20170108
  21. CYMBALTA [Suspect]
     Active Substance: DULOXETINE HYDROCHLORIDE
     Indication: MAJOR DEPRESSION
     Dosage: 30 MG, DAILY
     Route: 065
     Dates: start: 20161228, end: 20161230
  22. TRITTICO [Suspect]
     Active Substance: TRAZODONE HYDROCHLORIDE
     Indication: PRODUCT USED FOR UNKNOWN INDICATION
     Dosage: 150 MG, DAILY
     Route: 065
     Dates: start: 20161216, end: 20170505
  23. PRAXITEN [Suspect]
     Active Substance: OXAZEPAM
     Dosage: 30 MG, DAILY
     Route: 065
     Dates: start: 20170315, end: 20170316
  24. PRAXITEN [Suspect]
     Active Substance: OXAZEPAM
     Dosage: 22.5 MG, DAILY
     Route: 065
     Dates: start: 20170317, end: 20170326
  25. OLEOVIT D3 [Concomitant]
     Active Substance: CHOLECALCIFEROL
     Dosage: UNK, DAILY
     Route: 065
     Dates: start: 20170313
  26. CONCOR [Concomitant]
     Active Substance: BISOPROLOL FUMARATE
     Dosage: 2.5 MG, DAILY
     Route: 065
     Dates: start: 20170118, end: 20170118
  27. RAMIPRIL. [Concomitant]
     Active Substance: RAMIPRIL
     Dosage: 10 MG, DAILY
     Route: 065
     Dates: start: 20170218, end: 20170302
  28. RAMIPRIL. [Concomitant]
     Active Substance: RAMIPRIL
     Dosage: 5 MG, DAILY
     Route: 065
     Dates: start: 20170303
  29. RAMIPRIL HCT [Concomitant]
     Active Substance: HYDROCHLOROTHIAZIDE\RAMIPRIL
     Dosage: UNK, DAILY
     Route: 065
     Dates: start: 20170118
  30. RAMIPRIL HCT [Concomitant]
     Active Substance: HYDROCHLOROTHIAZIDE\RAMIPRIL
     Dosage: UNK, DAILY
     Route: 065
     Dates: start: 2016, end: 20170117
  31. TEMESTA (LORAZEPAM) [Concomitant]
     Active Substance: LORAZEPAM
     Dosage: 2 MG, DAILY
     Route: 065
     Dates: start: 20170102, end: 20170102
  32. UNASYN [Suspect]
     Active Substance: AMPICILLIN SODIUM\SULBACTAM SODIUM
     Dosage: 9 G, DAILY
     Route: 042
     Dates: start: 20170120, end: 20170202
  33. TRITTICO [Suspect]
     Active Substance: TRAZODONE HYDROCHLORIDE
     Dosage: 100 MG, DAILY
     Route: 065
     Dates: start: 2016, end: 20171215
  34. PRAXITEN [Suspect]
     Active Substance: OXAZEPAM
     Dosage: 100 MG, DAILY
     Route: 065
     Dates: start: 20170103, end: 20170111
  35. MOLAXOLE [Concomitant]
     Active Substance: POLYETHYLENE GLYCOL 3350\POTASSIUM CHLORIDE\SODIUM BICARBONATE\SODIUM CHLORIDE
     Dosage: 3 DF, DAILY
     Route: 065
     Dates: start: 20170104, end: 20170104
  36. ZANDIP [Concomitant]
     Dosage: 20 MG, DAILY
     Route: 065
     Dates: start: 20170105
  37. TEMESTA (LORAZEPAM) [Concomitant]
     Active Substance: LORAZEPAM
     Indication: PRODUCT USED FOR UNKNOWN INDICATION
     Dosage: 3.5 MG, DAILY
     Route: 065
     Dates: start: 20161228, end: 20161228
  38. TEMESTA (LORAZEPAM) [Concomitant]
     Active Substance: LORAZEPAM
     Dosage: 1 MG, DAILY
     Route: 065
     Dates: start: 201701, end: 201701
  39. TEMESTA (LORAZEPAM) [Concomitant]
     Active Substance: LORAZEPAM
     Dosage: 4 MG, DAILY
     Route: 065
     Dates: start: 20161229, end: 20170101
  40. LAMOTRIGINE. [Suspect]
     Active Substance: LAMOTRIGINE
     Dosage: 100 MG, DAILY
     Route: 065
     Dates: start: 20161216, end: 20170206
  41. CYMBALTA [Suspect]
     Active Substance: DULOXETINE HYDROCHLORIDE
     Dosage: 120 MG, DAILY
     Route: 065
     Dates: start: 20170216
  42. PRAXITEN [Suspect]
     Active Substance: OXAZEPAM
     Dosage: 75 MG, DAILY
     Route: 065
     Dates: start: 20170102, end: 20170102
  43. PRAXITEN [Suspect]
     Active Substance: OXAZEPAM
     Dosage: 45 MG, DAILY
     Dates: start: 20170313, end: 20170314
  44. OLEOVIT D3 [Concomitant]
     Active Substance: CHOLECALCIFEROL
     Dosage: UNK, DAILY
     Route: 065
     Dates: start: 2016, end: 20170312
  45. RAMIPRIL. [Concomitant]
     Active Substance: RAMIPRIL
     Dosage: 2.5 MG, DAILY
     Route: 065
     Dates: start: 20170118, end: 20170126
  46. RAMIPRIL. [Concomitant]
     Active Substance: RAMIPRIL
     Dosage: 5 MG, DAILY
     Route: 065
     Dates: start: 20170127, end: 20170217
  47. RISPERDAL [Concomitant]
     Active Substance: RISPERIDONE
     Dosage: 1 MG, UNKNOWN
     Route: 065
     Dates: start: 20170220
  48. BRINTELLIX [Concomitant]
     Active Substance: VORTIOXETINE HYDROBROMIDE
     Dosage: 5 MG, DAILY
     Route: 065
     Dates: start: 20161229, end: 20170102
  49. CYMBALTA [Suspect]
     Active Substance: DULOXETINE HYDROCHLORIDE
     Dosage: 60 MG, DAILY
     Route: 065
     Dates: start: 20161231, end: 20170116
  50. NEUROMULTIVIT [Concomitant]
     Active Substance: CYANOCOBALAMIN\PYRIDOXINE\THIAMINE
     Dosage: 2 DF, DAILY
     Dates: start: 2016
  51. TEMESTA (LORAZEPAM) [Concomitant]
     Active Substance: LORAZEPAM
     Dosage: 1 MG, DAILY
     Route: 065
     Dates: start: 20161222, end: 20161226

REACTIONS (14)
  - Head injury [Unknown]
  - Spinal osteoarthritis [Unknown]
  - C-reactive protein increased [Recovered/Resolved]
  - Fall [Recovered/Resolved]
  - Dermatitis allergic [Unknown]
  - Skin laceration [Unknown]
  - Bursa injury [Unknown]
  - Drug eruption [Recovered/Resolved]
  - Neutrophil count increased [Recovered/Resolved]
  - Chest pain [Unknown]
  - Platelet count increased [Recovered/Resolved]
  - Fall [Recovered/Resolved]
  - Alanine aminotransferase increased [Not Recovered/Not Resolved]
  - Spinal column injury [Unknown]

NARRATIVE: CASE EVENT DATE: 201701
